FAERS Safety Report 22208889 (Version 2)
Quarter: 2023Q2

REPORT INFORMATION
  Report Type: Spontaneous
  Country: BE (occurrence: BE)
  Receive Date: 20230413
  Receipt Date: 20230504
  Transmission Date: 20230721
  Serious: Yes (Other)
  Sender: FDA-Public Use
  Company Number: BE-TEVA-2023-BE-2877424

PATIENT
  Age: 53 Year
  Sex: Male
  Weight: 88 kg

DRUGS (2)
  1. COPAXONE [Suspect]
     Active Substance: GLATIRAMER ACETATE
     Indication: Relapsing-remitting multiple sclerosis
     Dosage: UNKNOWN FORM OF STRENGTH
     Route: 065
     Dates: start: 201004
  2. HYDROCHLOROTHIAZIDE\LISINOPRIL [Concomitant]
     Active Substance: HYDROCHLOROTHIAZIDE\LISINOPRIL
     Indication: Hypertension
     Dosage: 20 MG/12.5 MG
     Route: 048

REACTIONS (1)
  - Prostate cancer [Unknown]
